FAERS Safety Report 14642226 (Version 1)
Quarter: 2018Q1

REPORT INFORMATION
  Report Type: Spontaneous
  Country: US (occurrence: US)
  Receive Date: 20180315
  Receipt Date: 20180315
  Transmission Date: 20180509
  Serious: Yes (Hospitalization)
  Sender: FDA-Public Use
  Company Number: US-BEH-2018088650

PATIENT
  Sex: Male
  Weight: 75.74 kg

DRUGS (9)
  1. BERINERT [Suspect]
     Active Substance: HUMAN C1-ESTERASE INHIBITOR
     Dosage: UNK
     Route: 042
  2. LEVOTHYROXINE. [Concomitant]
     Active Substance: LEVOTHYROXINE
  3. EPINEPHRINE. [Concomitant]
     Active Substance: EPINEPHRINE
  4. DIPHENHYDRAMINE. [Concomitant]
     Active Substance: DIPHENHYDRAMINE
  5. CINRYZE [Concomitant]
     Active Substance: HUMAN C1-ESTERASE INHIBITOR
  6. IBUPROFEN. [Concomitant]
     Active Substance: IBUPROFEN
  7. STERILE WATER [Concomitant]
     Active Substance: WATER
  8. BERINERT [Suspect]
     Active Substance: HUMAN C1-ESTERASE INHIBITOR
     Indication: HEREDITARY ANGIOEDEMA
     Dosage: 1500 IU, PRN
     Route: 042
     Dates: start: 20120217
  9. SODIUM CHLORIDE. [Concomitant]
     Active Substance: SODIUM CHLORIDE

REACTIONS (1)
  - Drug ineffective [Unknown]
